FAERS Safety Report 19471559 (Version 1)
Quarter: 2021Q2

REPORT INFORMATION
  Report Type: Spontaneous
  Country: US (occurrence: US)
  Receive Date: 20210629
  Receipt Date: 20210629
  Transmission Date: 20210717
  Serious: Yes (Death)
  Sender: FDA-Public Use
  Company Number: None

PATIENT
  Sex: Male
  Weight: 77.85 kg

DRUGS (2)
  1. PREDNISONE. [Suspect]
     Active Substance: PREDNISONE
     Indication: SALIVARY GLAND CANCER
     Dosage: ?          OTHER FREQUENCY:5MG AM, 2.5MG PM;?
     Route: 048
     Dates: start: 20201209
  2. ABIRATERONE. [Suspect]
     Active Substance: ABIRATERONE ACETATE
     Indication: SALIVARY GLAND CANCER
     Route: 048
     Dates: start: 20201209

REACTIONS (1)
  - Death [None]
